FAERS Safety Report 7556725-2 (Version None)
Quarter: 2011Q2

REPORT INFORMATION
  Report Type: 
  Country: None (occurrence: None)
  Receive Date: 20110620
  Receipt Date: 20110602
  Transmission Date: 20111010
  Serious: No
  Sender: FDA-Public Use
  Company Number: US-B.I. PHARMACEUTICALS,INC./RIDGEFIELD-2011-BP-10332BP

PATIENT
  Age: 63 Year
  Sex: Female
  Weight: 68.04 kg

DRUGS (10)
  1. VITAMIN B6 [Concomitant]
  2. FISH OIL [Concomitant]
  3. SPIRIVA [Suspect]
     Indication: CHRONIC OBSTRUCTIVE PULMONARY DISEASE
     Dosage: 18 MCG
     Route: 055
     Dates: start: 20100415
  4. LORAZEPAM [Concomitant]
     Indication: ANXIETY
  5. VITAMIN D [Concomitant]
  6. ACIPHEX [Concomitant]
     Indication: GASTROOESOPHAGEAL REFLUX DISEASE
  7. ZOLOFT [Concomitant]
     Indication: DEPRESSION
  8. VITAMIN B COMPLEX CAP [Concomitant]
  9. NIASPAN [Concomitant]
  10. CALCIUM CARBONATE [Concomitant]

REACTIONS (1)
  - DRUG INEFFECTIVE [None]
